FAERS Safety Report 15745437 (Version 2)
Quarter: 2019Q1

REPORT INFORMATION
  Report Type: Report from Study
  Country: JP (occurrence: JP)
  Receive Date: 20181220
  Receipt Date: 20190211
  Transmission Date: 20190417
  Serious: No
  Sender: FDA-Public Use
  Company Number: JP-AMGEN-JPNCT2018181396

PATIENT
  Sex: Male

DRUGS (7)
  1. NEXIUM [Concomitant]
     Active Substance: ESOMEPRAZOLE MAGNESIUM
     Indication: HYPERPARATHYROIDISM PRIMARY
     Dosage: 20 MG, UNK
     Route: 048
     Dates: start: 20170707
  2. KAYEXALATE [Concomitant]
     Active Substance: SODIUM POLYSTYRENE SULFONATE
     Indication: CHRONIC KIDNEY DISEASE
     Dosage: 3 DF, UNK
     Route: 048
     Dates: start: 20170703
  3. WARFARIN [Concomitant]
     Active Substance: WARFARIN
     Indication: ATRIAL FIBRILLATION
     Dosage: 1.5 MG, UNK
     Route: 048
     Dates: start: 20170616
  4. CINACALCET HCL [Suspect]
     Active Substance: CINACALCET HYDROCHLORIDE
     Dosage: 25 MG, BID
     Route: 048
     Dates: start: 20170725, end: 20180825
  5. CINACALCET HCL [Suspect]
     Active Substance: CINACALCET HYDROCHLORIDE
     Indication: HYPERPARATHYROIDISM PRIMARY
     Dosage: 25 MG, QD
     Route: 048
     Dates: start: 20170615, end: 20170724
  6. FEBURIC [Concomitant]
     Active Substance: FEBUXOSTAT
     Indication: HYPERURICAEMIA
     Dosage: 10 MG, UNK
     Route: 048
     Dates: start: 20170623
  7. PREDONINE [Concomitant]
     Active Substance: PREDNISOLONE
     Indication: GOUT
     Dosage: 30 MG, UNK
     Route: 048
     Dates: start: 20170707, end: 20180109

REACTIONS (1)
  - No adverse event [Unknown]
